FAERS Safety Report 15649989 (Version 14)
Quarter: 2021Q2

REPORT INFORMATION
  Report Type: Report from Study
  Country: JP (occurrence: JP)
  Receive Date: 20181123
  Receipt Date: 20210621
  Transmission Date: 20210716
  Serious: Yes (Hospitalization, Other)
  Sender: FDA-Public Use
  Company Number: JP-BRISTOL-MYERS SQUIBB COMPANY-BMS-2018-108807

PATIENT
  Age: 51 Year
  Sex: Female
  Weight: 51.5 kg

DRUGS (12)
  1. NEO MINOPHAGEN C [GLYCYRRHIZIC ACID, AMMONIUM SALT] [Concomitant]
     Active Substance: AMMONIUM GLYCYRRHIZATE
     Indication: PRODUCT USED FOR UNKNOWN INDICATION
     Dosage: 40 MILLILITER
     Route: 042
     Dates: start: 20190116, end: 20190128
  2. NIVOLUMAB [Suspect]
     Active Substance: NIVOLUMAB
     Indication: MALIGNANT MELANOMA
     Dosage: 80 MILLIGRAM, Q3WK
     Route: 041
     Dates: start: 20181030, end: 20190208
  3. BRAFTOVI [Suspect]
     Active Substance: ENCORAFENIB
     Dosage: 300 MILLIGRAM
     Route: 048
     Dates: start: 20190909, end: 20190930
  4. MEKTOVI [Suspect]
     Active Substance: BINIMETINIB
     Indication: MALIGNANT MELANOMA STAGE III
     Dosage: 90 MILLIGRAM
     Route: 048
     Dates: start: 20190319, end: 20191020
  5. IPILIMUMAB [Suspect]
     Active Substance: IPILIMUMAB
     Indication: MALIGNANT MELANOMA
     Dosage: 3 MILLIGRAM/KILOGRAM, Q3WK
     Route: 041
     Dates: start: 20181030, end: 20190208
  6. MEKTOVI [Suspect]
     Active Substance: BINIMETINIB
     Dosage: 60 MILLIGRAM
     Route: 048
     Dates: start: 20190909, end: 20190930
  7. BRAFTOVI [Suspect]
     Active Substance: ENCORAFENIB
     Indication: MALIGNANT MELANOMA STAGE III
     Dosage: 450 MILLIGRAM
     Route: 048
     Dates: start: 20190319, end: 20190730
  8. BRAFTOVI [Suspect]
     Active Substance: ENCORAFENIB
     Dosage: 150 MILLIGRAM
     Route: 048
     Dates: start: 20190827, end: 20190908
  9. MEKTOVI [Suspect]
     Active Substance: BINIMETINIB
     Dosage: 30 MILLIGRAM
     Route: 048
     Dates: start: 20190827, end: 20190908
  10. BRAFTOVI [Suspect]
     Active Substance: ENCORAFENIB
     Dosage: 450 MILLIGRAM
     Route: 048
     Dates: start: 20191001, end: 20191020
  11. NEO MINOPHAGEN C [GLYCYRRHIZIC ACID, AMMONIUM SALT] [Concomitant]
     Active Substance: AMMONIUM GLYCYRRHIZATE
     Dosage: 60 MILLILITER
     Route: 042
     Dates: start: 20181114
  12. THYRADIN [Suspect]
     Active Substance: LEVOTHYROXINE
     Indication: PRODUCT USED FOR UNKNOWN INDICATION
     Dosage: UNK
     Route: 065

REACTIONS (7)
  - Meningitis [Recovered/Resolved]
  - Pyrexia [Recovered/Resolved]
  - Myalgia [Unknown]
  - Non-cardiogenic pulmonary oedema [Recovered/Resolved]
  - Drug-induced liver injury [Recovered/Resolved]
  - Hepatic function abnormal [Recovered/Resolved]
  - Prescribed underdose [Unknown]

NARRATIVE: CASE EVENT DATE: 20181105
